FAERS Safety Report 10028099 (Version 2)
Quarter: 2017Q1

REPORT INFORMATION
  Report Type: Spontaneous
  Country: FR (occurrence: FR)
  Receive Date: 20140319
  Receipt Date: 20170308
  Transmission Date: 20170428
  Serious: Yes (Life-Threatening, Hospitalization)
  Sender: FDA-Public Use
  Company Number: FR-ALSI-201200303

PATIENT
  Sex: Male

DRUGS (1)
  1. OXYGEN MEDICINAL ALSF 200 BAR, GAZ POUR INHALATION, EN BOUTEILLE OXYGEN [Suspect]
     Active Substance: OXYGEN
     Indication: OXYGEN SUPPLEMENTATION
     Route: 055
     Dates: start: 20121010, end: 20121010

REACTIONS (6)
  - Oxygen saturation decreased [None]
  - Device failure [None]
  - Product quality issue [None]
  - Drug ineffective [None]
  - Underdose [None]
  - Hypotension [None]
